FAERS Safety Report 26215303 (Version 1)
Quarter: 2025Q4

REPORT INFORMATION
  Report Type: Report from Study
  Country: CA (occurrence: CA)
  Receive Date: 20251230
  Receipt Date: 20251230
  Transmission Date: 20260117
  Serious: Yes (Other)
  Sender: ABBVIE
  Company Number: CA-ABBVIE-6609851

PATIENT
  Age: 62 Year
  Sex: Female

DRUGS (1)
  1. SKYRIZI [Suspect]
     Active Substance: RISANKIZUMAB-RZAA
     Indication: Psoriasis
     Dosage: FORM STRENGTH: 600MG IV??600MG IV INFUSED AT WEEK 0, WEEK 4 AND WEEK 8
     Route: 042

REACTIONS (4)
  - Metastatic malignant melanoma [Recovering/Resolving]
  - Colitis [Recovering/Resolving]
  - Brain neoplasm malignant [Recovering/Resolving]
  - Inflammatory bowel disease [Recovering/Resolving]

NARRATIVE: CASE EVENT DATE: 20230101
